FAERS Safety Report 4313741-1 (Version None)
Quarter: 2004Q1

REPORT INFORMATION
  Report Type: 
  Country: None (occurrence: None)
  Receive Date: 20040305
  Receipt Date: 20040220
  Transmission Date: 20041129
  Serious: Yes (Disabling)
  Sender: FDA-Public Use
  Company Number: 200206324

PATIENT
  Age: 43 Year
  Sex: Female
  Weight: 58.9676 kg

DRUGS (4)
  1. BOTOX [Suspect]
     Indication: MIGRAINE
     Dosage: 92 UINITS PRN IM
     Route: 030
     Dates: start: 20010507
  2. BOTOX [Suspect]
     Indication: SKIN WRINKLING
     Dosage: 92 UINITS PRN IM
     Route: 030
     Dates: start: 20010507
  3. IMITREX [Concomitant]
  4. FIORINAL [Concomitant]

REACTIONS (9)
  - ANAL FISSURE [None]
  - CHEST PAIN [None]
  - DISCOMFORT [None]
  - FATIGUE [None]
  - FIBROMYALGIA [None]
  - HAEMORRHOIDS [None]
  - HEADACHE [None]
  - MIGRAINE [None]
  - URTICARIA [None]
